FAERS Safety Report 20389515 (Version 1)
Quarter: 2022Q1

REPORT INFORMATION
  Report Type: Spontaneous
  Country: FR (occurrence: FR)
  Receive Date: 20220128
  Receipt Date: 20220128
  Transmission Date: 20220423
  Serious: Yes (Other)
  Sender: FDA-Public Use
  Company Number: FR-LEO Pharma-335391

PATIENT
  Age: 28 Year
  Sex: Female

DRUGS (4)
  1. PROTOPIC [Suspect]
     Active Substance: TACROLIMUS
     Indication: Vitiligo
     Dosage: 1 APPLICATION DAILY WITH SUN EXPOSURE FOR 15 MINUTES A DAY?STOPPED: AS SOON AS SHE FOUND OUT ABOUT H
     Route: 061
     Dates: start: 202009
  2. PROTOPIC [Suspect]
     Active Substance: TACROLIMUS
     Indication: Vitiligo
     Dosage: 1 APPLICATION DAILY WITH SUN EXPOSURE FOR 15 MINUTES A DAY
     Route: 061
     Dates: start: 202104, end: 202108
  3. PROTOPIC [Suspect]
     Active Substance: TACROLIMUS
     Indication: Vitiligo
     Dosage: 1 APPLICATION DAILY WITH SUN EXPOSURE FOR 15 MINUTES A DAY?STOPPED: AS SOON AS SHE FOUND OUT ABOUT H
     Route: 061
     Dates: start: 202009
  4. PROTOPIC [Suspect]
     Active Substance: TACROLIMUS
     Indication: Vitiligo
     Dosage: 1 APPLICATION DAILY WITH SUN EXPOSURE FOR 15 MINUTES A DAY
     Route: 061
     Dates: start: 202104, end: 202108

REACTIONS (5)
  - Product use in unapproved indication [Unknown]
  - Drug effective for unapproved indication [Unknown]
  - Abortion spontaneous [Unknown]
  - Maternal exposure during pregnancy [Unknown]
  - Off label use [Unknown]

NARRATIVE: CASE EVENT DATE: 20200901
